FAERS Safety Report 6554013-4 (Version None)
Quarter: 2010Q1

REPORT INFORMATION
  Report Type: 
  Country: None (occurrence: None)
  Receive Date: 20100125
  Receipt Date: 20100125
  Transmission Date: 20100710
  Serious: Yes (Hospitalization, Other)
  Sender: FDA-Public Use
  Company Number: None

PATIENT
  Age: 21 Year
  Sex: Female
  Weight: 56.6996 kg

DRUGS (1)
  1. YAZ [Suspect]
     Indication: CONTRACEPTION
     Dosage: 1 PILL ONCE DAILY ORAL
     Route: 048
     Dates: start: 20040301, end: 20070901

REACTIONS (4)
  - CHOLECYSTECTOMY [None]
  - MALAISE [None]
  - NAUSEA [None]
  - PAIN [None]
